FAERS Safety Report 4937515-3 (Version None)
Quarter: 2006Q1

REPORT INFORMATION
  Report Type: 
  Country: None (occurrence: None)
  Receive Date: 20060306
  Receipt Date: 20060221
  Transmission Date: 20060701
  Serious: Yes (Other)
  Sender: FDA-Public Use
  Company Number: 2006029820

PATIENT
  Age: 73 Year
  Sex: Female

DRUGS (5)
  1. ARTHROTEC [Suspect]
     Indication: ARTHRITIS
     Dosage: 150 MG (50 MG, 3 IN 1 D), ORAL
     Route: 048
  2. NEXIUM [Suspect]
     Indication: GASTROOESOPHAGEAL REFLUX DISEASE
  3. NABUMETONE [Suspect]
     Indication: ARTHRITIS
     Dosage: 1500 MG (750 MG, 2 IN 1 D),
     Dates: start: 20060201, end: 20060201
  4. TRICOR [Concomitant]
  5. PROPOXYPHENE NAPSYLATE W/ACETAMINOPHENE (DEXTROPROPOXYPHENE NAPSILATE, [Concomitant]

REACTIONS (11)
  - ABDOMINAL PAIN UPPER [None]
  - BLISTER [None]
  - CLAVICLE FRACTURE [None]
  - DIARRHOEA [None]
  - DRUG INTERACTION [None]
  - FALL [None]
  - HYPERTENSION [None]
  - NAUSEA [None]
  - RASH [None]
  - STERNAL INJURY [None]
  - SWELLING FACE [None]
